FAERS Safety Report 10414810 (Version 1)
Quarter: 2014Q3

REPORT INFORMATION
  Report Type: Spontaneous
  Country: US (occurrence: None)
  Receive Date: 20140827
  Receipt Date: 20140827
  Transmission Date: 20150326
  Serious: No
  Sender: FDA-Public Use
  Company Number: None

PATIENT
  Age: 49 Year
  Sex: Female

DRUGS (1)
  1. CREST PRO-HEALTH COMPLETE (FRESH MINT) [Suspect]
     Active Substance: SODIUM FLUORIDE

REACTIONS (2)
  - Tooth discolouration [None]
  - Tongue discolouration [None]

NARRATIVE: CASE EVENT DATE: 20140815
